FAERS Safety Report 6479214-5 (Version None)
Quarter: 2009Q4

REPORT INFORMATION
  Report Type: 
  Country: None (occurrence: None)
  Receive Date: 20091207
  Receipt Date: 20090218
  Transmission Date: 20100525
  Serious: No
  Sender: FDA-Public Use
  Company Number: US-AMGEN-KDL334439

PATIENT
  Sex: Female

DRUGS (1)
  1. ENBREL [Suspect]
     Indication: RHEUMATOID ARTHRITIS
     Route: 058
     Dates: start: 20090108

REACTIONS (6)
  - ABDOMINAL PAIN [None]
  - FATIGUE [None]
  - INCREASED TENDENCY TO BRUISE [None]
  - MICTURITION URGENCY [None]
  - URINE COLOUR ABNORMAL [None]
  - VOMITING [None]
